FAERS Safety Report 6905658-0 (Version None)
Quarter: 2010Q3

REPORT INFORMATION
  Report Type: 
  Country: None (occurrence: None)
  Receive Date: 20100804
  Receipt Date: 20100728
  Transmission Date: 20110219
  Serious: Yes (Death)
  Sender: FDA-Public Use
  Company Number: DK-BRISTOL-MYERS SQUIBB COMPANY-15213267

PATIENT
  Age: 36 Year
  Sex: Male

DRUGS (3)
  1. ABILIFY [Suspect]
     Indication: SCHIZOPHRENIA
     Dosage: TABS
     Dates: start: 20091104
  2. ZYPREXA [Suspect]
     Indication: SCHIZOPHRENIA
     Dosage: 20MG COATED TABS
     Dates: start: 20060615
  3. REMERON [Suspect]
     Indication: DEPRESSION
     Route: 048
     Dates: start: 20091104

REACTIONS (2)
  - DRUG TOXICITY [None]
  - MYOCARDITIS [None]
